FAERS Safety Report 22005844 (Version 1)
Quarter: 2023Q1

REPORT INFORMATION
  Report Type: Spontaneous
  Country: US (occurrence: None)
  Receive Date: 20230216
  Receipt Date: 20230216
  Transmission Date: 20230418
  Serious: Yes (Hospitalization)
  Sender: FDA-Public Use
  Company Number: None

PATIENT
  Age: 81 Year
  Sex: Female
  Weight: 57.7 kg

DRUGS (22)
  1. ALECENSA [Suspect]
     Active Substance: ALECTINIB HYDROCHLORIDE
     Indication: Lung carcinoma cell type unspecified stage 0
     Dosage: FREQUENCY : TWICE A DAY;?
     Route: 048
  2. ALEVE [Concomitant]
     Active Substance: NAPROXEN SODIUM
  3. ASPIRIN [Concomitant]
     Active Substance: ASPIRIN
  4. DIPHENHYDRAMINE [Concomitant]
     Active Substance: DIPHENHYDRAMINE
  5. DOCUSATE SODIUM [Concomitant]
     Active Substance: DOCUSATE SODIUM
  6. ELIQUIS [Concomitant]
     Active Substance: APIXABAN
  7. HEPARIN [Concomitant]
     Active Substance: HEPARIN SODIUM
  8. LEVOTHYROXIEN [Concomitant]
  9. LISINOPRIL [Concomitant]
     Active Substance: LISINOPRIL
  10. MILK OF BISMUTH [Concomitant]
  11. MORPHINE [Concomitant]
     Active Substance: MORPHINE
  12. NITROGLYCERIN [Concomitant]
     Active Substance: NITROGLYCERIN
  13. ONDANSETRON [Concomitant]
     Active Substance: ONDANSETRON
  14. PERCOCET [Concomitant]
     Active Substance: ACETAMINOPHEN\OXYCODONE HYDROCHLORIDE
  15. PANTOPRAZOLE [Concomitant]
     Active Substance: PANTOPRAZOLE
  16. POTASSIUM CHLORIDE [Concomitant]
     Active Substance: POTASSIUM CHLORIDE
  17. POTASSIUM CITRATE [Concomitant]
     Active Substance: POTASSIUM CITRATE
  18. PROMETHAZINE [Concomitant]
     Active Substance: PROMETHAZINE HYDROCHLORIDE
  19. PROTONIX [Concomitant]
     Active Substance: PANTOPRAZOLE SODIUM
  20. SORBITOL [Concomitant]
     Active Substance: SORBITOL
  21. TEMAZEPAM [Concomitant]
     Active Substance: TEMAZEPAM
  22. ZOLPIDEM [Concomitant]
     Active Substance: ZOLPIDEM TARTRATE

REACTIONS (2)
  - Pneumonia [None]
  - Therapy interrupted [None]

NARRATIVE: CASE EVENT DATE: 20230126
